FAERS Safety Report 5356953-0 (Version None)
Quarter: 2007Q2

REPORT INFORMATION
  Report Type: 
  Country: None (occurrence: None)
  Receive Date: 20070614
  Receipt Date: 20070605
  Transmission Date: 20071010
  Serious: Yes (Hospitalization, Disabling, Other)
  Sender: FDA-Public Use
  Company Number: US-PURDUE-USA_2007_0027366

PATIENT
  Age: 47 Year
  Sex: Male

DRUGS (8)
  1. OXYCONTIN [Suspect]
     Indication: BACK PAIN
     Dosage: 80 MG, BID
     Dates: start: 20040101, end: 20070422
  2. REBETOL [Concomitant]
     Indication: HEPATITIS C
     Dosage: UNK, UNK
     Route: 055
  3. IBUPROFEN [Concomitant]
     Indication: BACK PAIN
     Dosage: UNK, UNK
     Dates: start: 20070501
  4. ROXICODONE [Suspect]
     Indication: BACK PAIN
     Dates: end: 20070401
  5. MORPHINE SULFATE [Suspect]
     Indication: BACK PAIN
     Dosage: 60 MG, UNK
     Dates: start: 20040101, end: 20070401
  6. MORPHINE SULFATE [Suspect]
     Dosage: 90 MG, UNK
  7. OXYCODONE HCL [Suspect]
     Indication: BACK PAIN
  8. VALIUM [Concomitant]
     Dosage: 5 MG, UNK

REACTIONS (19)
  - ACTIVITIES OF DAILY LIVING IMPAIRED [None]
  - AMNESIA [None]
  - COMA [None]
  - CONVULSION [None]
  - DISTURBANCE IN ATTENTION [None]
  - DRUG DEPENDENCE [None]
  - DRUG WITHDRAWAL SYNDROME [None]
  - DYSSTASIA [None]
  - EYE INJURY [None]
  - HEADACHE [None]
  - IMPAIRED WORK ABILITY [None]
  - MENTAL DISORDER [None]
  - MUSCLE TWITCHING [None]
  - READING DISORDER [None]
  - SPEECH DISORDER [None]
  - THINKING ABNORMAL [None]
  - TREMOR [None]
  - VISION BLURRED [None]
  - VISUAL ACUITY REDUCED [None]
